FAERS Safety Report 26177477 (Version 1)
Quarter: 2025Q4

REPORT INFORMATION
  Report Type: Report from Study
  Country: CA (occurrence: CA)
  Receive Date: 20251219
  Receipt Date: 20251219
  Transmission Date: 20260119
  Serious: Yes (Hospitalization, Other)
  Sender: ABBVIE
  Company Number: CA-ABBVIE-6590029

PATIENT
  Sex: Male

DRUGS (4)
  1. HUMIRA [Suspect]
     Active Substance: ADALIMUMAB
     Indication: Crohn^s disease
     Route: 058
     Dates: start: 2016
  2. METHOTREXATE [Suspect]
     Active Substance: METHOTREXATE
     Indication: Product used for unknown indication
     Route: 065
  3. SOLU-MEDROL [Suspect]
     Active Substance: METHYLPREDNISOLONE SODIUM SUCCINATE
     Indication: Product used for unknown indication
     Route: 065
  4. FOLIC ACID [Concomitant]
     Active Substance: FOLIC ACID
     Indication: Product used for unknown indication

REACTIONS (20)
  - Crohn^s disease [Unknown]
  - Intestinal dilatation [Unknown]
  - Bladder dilatation [Unknown]
  - Localised oedema [Unknown]
  - Renal cyst [Unknown]
  - Pleural effusion [Recovered/Resolved]
  - Drug ineffective [Unknown]
  - Drug ineffective [Unknown]
  - Pelvic fluid collection [Unknown]
  - Gastrointestinal mucosa hyperaemia [Unknown]
  - Fat tissue increased [Unknown]
  - Appendicectomy [Unknown]
  - Anastomotic stenosis [Unknown]
  - Gastrointestinal oedema [Unknown]
  - Large intestinal ulcer [Unknown]
  - Ileal stenosis [Unknown]
  - Intestinal stenosis [Unknown]
  - C-reactive protein abnormal [Unknown]
  - Wound secretion [Unknown]
  - Tachycardia [Unknown]
